FAERS Safety Report 7423334-5 (Version None)
Quarter: 2011Q2

REPORT INFORMATION
  Report Type: 
  Country: None (occurrence: None)
  Receive Date: 20110419
  Receipt Date: 20110405
  Transmission Date: 20111010
  Serious: Yes (Other)
  Sender: FDA-Public Use
  Company Number: PHHY2011AR15598

PATIENT
  Sex: Male

DRUGS (1)
  1. CLOZAPINE [Suspect]
     Dosage: 250 MG, QD

REACTIONS (4)
  - TONSILLAR HYPERTROPHY [None]
  - SOMNOLENCE [None]
  - OXYGEN SATURATION DECREASED [None]
  - TONSILLAR DISORDER [None]
